FAERS Safety Report 15732519 (Version 1)
Quarter: 2018Q4

REPORT INFORMATION
  Report Type: Spontaneous
  Country: US (occurrence: US)
  Receive Date: 20181217
  Receipt Date: 20181217
  Transmission Date: 20190205
  Serious: No
  Sender: FDA-Public Use
  Company Number: US-VIFOR (INTERNATIONAL) INC.-VIT-2018-11043

PATIENT
  Sex: Female

DRUGS (13)
  1. HEPARINE SODIUM [Concomitant]
     Active Substance: HEPARIN SODIUM
  2. SYNTHROID [Concomitant]
     Active Substance: LEVOTHYROXINE SODIUM
  3. TACROLIMUS. [Concomitant]
     Active Substance: TACROLIMUS
  4. ASPIRIN. [Concomitant]
     Active Substance: ASPIRIN
  5. PREDNISONE. [Concomitant]
     Active Substance: PREDNISONE
  6. RANITIDINE  HCL [Concomitant]
     Active Substance: RANITIDINE HYDROCHLORIDE
  7. RENVELA [Concomitant]
     Active Substance: SEVELAMER CARBONATE
  8. DIALYVITE [Concomitant]
     Active Substance: ASCORBIC ACID\BIOTIN\CALCIUM PANTOTHENATE\COBALAMIN\FOLIC ACID\NIACINAMIDE\PYRIDOXINE HYDROCHLORIDE\RIBOFLAVIN\THIAMINE MONONITRATE
  9. CALCIUM CARBONATE. [Concomitant]
     Active Substance: CALCIUM CARBONATE
  10. CLONIDINE HCL [Concomitant]
     Active Substance: CLONIDINE HYDROCHLORIDE
  11. ZOFRAN [Concomitant]
     Active Substance: ONDANSETRON HYDROCHLORIDE
  12. VELTASSA [Suspect]
     Active Substance: PATIROMER
     Indication: HYPERKALAEMIA
     Route: 065
  13. TYLENOL [Concomitant]
     Active Substance: ACETAMINOPHEN

REACTIONS (1)
  - Diarrhoea [Unknown]
